FAERS Safety Report 7179187-6 (Version None)
Quarter: 2010Q4

REPORT INFORMATION
  Report Type: 
  Country: None (occurrence: None)
  Receive Date: 20101221
  Receipt Date: 20101217
  Transmission Date: 20110411
  Serious: Yes (Other)
  Sender: FDA-Public Use
  Company Number: BR-ROXANE LABORATORIES, INC.-2010-RO-01709RO

PATIENT
  Age: 33 Year
  Sex: Female

DRUGS (5)
  1. METHOTREXATE [Suspect]
     Indication: MIXED CONNECTIVE TISSUE DISEASE
  2. PREDNISONE [Suspect]
     Indication: MIXED CONNECTIVE TISSUE DISEASE
  3. CHLOROQUINE [Suspect]
     Indication: MIXED CONNECTIVE TISSUE DISEASE
  4. FLUOXETINE [Suspect]
  5. OMEPRAZOLE [Suspect]

REACTIONS (5)
  - CUSHINGOID [None]
  - EXOPHTHALMOS [None]
  - MUSCLE ATROPHY [None]
  - OSTEONECROSIS [None]
  - SKIN STRIAE [None]
